FAERS Safety Report 10159969 (Version 2)
Quarter: 2014Q2

REPORT INFORMATION
  Report Type: Spontaneous
  Country: US (occurrence: US)
  Receive Date: 20140508
  Receipt Date: 20140620
  Transmission Date: 20141212
  Serious: Yes (Death, Hospitalization, Other)
  Sender: FDA-Public Use
  Company Number: US-009507513-1405USA002878

PATIENT
  Sex: Female
  Weight: 72.56 kg

DRUGS (1)
  1. JANUVIA [Suspect]
     Indication: TYPE 2 DIABETES MELLITUS
     Dosage: 50 MG, QD
     Route: 048
     Dates: start: 20110504

REACTIONS (2)
  - Pancreatic carcinoma [Unknown]
  - Pancreatic neuroendocrine tumour [Fatal]
